FAERS Safety Report 22156726 (Version 1)
Quarter: 2023Q1

REPORT INFORMATION
  Report Type: Spontaneous
  Country: JP (occurrence: JP)
  Receive Date: 20230330
  Receipt Date: 20230330
  Transmission Date: 20230417
  Serious: Yes (Hospitalization, Other)
  Sender: FDA-Public Use
  Company Number: JP-DSJP-DSJ-2023-102098

PATIENT
  Age: 57 Year
  Sex: Female
  Weight: 74.5 kg

DRUGS (4)
  1. ENHERTU [Suspect]
     Active Substance: FAM-TRASTUZUMAB DERUXTECAN-NXKI
     Indication: Malignant neoplasm of unknown primary site
     Dosage: 6.4 MG/KG, ONCE EVERY 3 WK
     Route: 041
     Dates: start: 20221121, end: 20221121
  2. ENHERTU [Suspect]
     Active Substance: FAM-TRASTUZUMAB DERUXTECAN-NXKI
     Indication: Neuroendocrine carcinoma
     Dosage: 6.4 MG/KG, ONCE EVERY 3 WK
     Route: 041
     Dates: start: 20221219, end: 20221219
  3. DECADRON [Suspect]
     Active Substance: DEXAMETHASONE
     Indication: Meningitis
     Dosage: 2 MG, QD
     Route: 048
     Dates: start: 20221011
  4. DECADRON [Suspect]
     Active Substance: DEXAMETHASONE
     Dosage: UNK
     Route: 048
     Dates: start: 20221219

REACTIONS (4)
  - Febrile neutropenia [Recovering/Resolving]
  - Thrombocytopenia [Recovered/Resolved]
  - Hyperglycaemia [Recovering/Resolving]
  - Off label use [Unknown]

NARRATIVE: CASE EVENT DATE: 20221121
